FAERS Safety Report 20697446 (Version 2)
Quarter: 2022Q2

REPORT INFORMATION
  Report Type: Report from Study
  Country: US (occurrence: None)
  Receive Date: 20220411
  Receipt Date: 20220427
  Transmission Date: 20220721
  Serious: Yes (Hospitalization)
  Sender: FDA-Public Use
  Company Number: US-Eisai Medical Research-EC-2022-112466

PATIENT
  Age: 61 Year
  Sex: Female
  Weight: 86.18 kg

DRUGS (7)
  1. LENVIMA [Suspect]
     Active Substance: LENVATINIB
     Indication: Uterine cancer
     Route: 048
     Dates: start: 20220217, end: 2022
  2. LOSARTAN [Concomitant]
     Active Substance: LOSARTAN
  3. NIFEDIPINE [Concomitant]
     Active Substance: NIFEDIPINE
  4. METFORMIN ER GASTRIC [Concomitant]
  5. GLIMEPIRIDE [Concomitant]
     Active Substance: GLIMEPIRIDE
  6. TYLENOL [Concomitant]
     Active Substance: ACETAMINOPHEN
  7. HYDROCHLOROTHIAZIDE\LOSARTAN [Concomitant]
     Active Substance: HYDROCHLOROTHIAZIDE\LOSARTAN

REACTIONS (7)
  - Asthenia [Unknown]
  - Decreased appetite [Unknown]
  - Pelvic pain [Unknown]
  - Fluid retention [Unknown]
  - Weight decreased [Unknown]
  - Oedema peripheral [Unknown]
  - Procedural pain [Unknown]

NARRATIVE: CASE EVENT DATE: 20220101
